FAERS Safety Report 9176730 (Version 2)
Quarter: 2013Q2

REPORT INFORMATION
  Report Type: Spontaneous
  Country: ES (occurrence: ES)
  Receive Date: 20130321
  Receipt Date: 20130517
  Transmission Date: 20140414
  Serious: Yes (Life-Threatening, Other)
  Sender: FDA-Public Use
  Company Number: ES-009507513-1303ESP005837

PATIENT
  Age: 83 Year
  Sex: Female

DRUGS (3)
  1. TIENAM I.V. 500 MG [Suspect]
     Indication: PANCREATITIS ACUTE
     Dosage: UNK
     Route: 042
     Dates: start: 20081025, end: 20081111
  2. IOVERSOL [Suspect]
  3. AMIKACIN [Concomitant]

REACTIONS (1)
  - Drug reaction with eosinophilia and systemic symptoms [Recovering/Resolving]
